FAERS Safety Report 4850300-6 (Version None)
Quarter: 2005Q4

REPORT INFORMATION
  Report Type: 
  Country: None (occurrence: None)
  Receive Date: 20051123
  Receipt Date: 20050902
  Transmission Date: 20060501
  Serious: No
  Sender: FDA-Public Use
  Company Number: 217112

PATIENT
  Age: 51 Year
  Sex: Female
  Weight: 77.1 kg

DRUGS (9)
  1. RAPTIVA [Suspect]
     Indication: DRUG USE FOR UNKNOWN INDICATION
     Dosage: 0.5 ML, 1/WEEK, SUBCUTANEOUS
     Route: 058
     Dates: start: 20050721
  2. ZESTRIL [Concomitant]
  3. SYNTHROID [Concomitant]
  4. PREMARIN [Concomitant]
  5. AMANTADINE HCL [Concomitant]
  6. ZOLOFT [Concomitant]
  7. ZYRTEC [Concomitant]
  8. DEMEROL [Concomitant]
  9. CALCIUM/VITAMIN D (CHOLECALCIFEROL, CALCIUM NOS) [Concomitant]

REACTIONS (1)
  - HERPES ZOSTER [None]
